FAERS Safety Report 14698296 (Version 3)
Quarter: 2018Q2

REPORT INFORMATION
  Report Type: Report from Study
  Country: BE (occurrence: BE)
  Receive Date: 20180330
  Receipt Date: 20180405
  Transmission Date: 20180711
  Serious: Yes (Hospitalization)
  Sender: FDA-Public Use
  Company Number: BE-ROCHE-2096805

PATIENT
  Age: 75 Year
  Sex: Male
  Weight: 105 kg

DRUGS (17)
  1. COBIMETINIB. [Suspect]
     Active Substance: COBIMETINIB
     Indication: TRANSITIONAL CELL CARCINOMA
     Dosage: DATE OF MOST RECENT DOSE WAS ON 21/MAR/2018
     Route: 048
     Dates: start: 20180308
  2. BILASTINE [Concomitant]
     Active Substance: BILASTINE
     Indication: DERMATITIS ACNEIFORM
     Route: 065
     Dates: start: 20180321, end: 20180322
  3. D-VITAL [Concomitant]
     Indication: METASTASES TO BONE
     Route: 065
     Dates: start: 20180112
  4. BISOPROLOL [Concomitant]
     Active Substance: BISOPROLOL
     Indication: HYPERTENSION
     Route: 065
     Dates: start: 20160222
  5. ALLOPURINOL. [Concomitant]
     Active Substance: ALLOPURINOL
     Indication: GOUT
     Route: 065
     Dates: start: 2008
  6. FLUOXONE [Concomitant]
     Indication: NERVOUSNESS
     Route: 065
     Dates: start: 20171222
  7. ATEZOLIZUMAB. [Suspect]
     Active Substance: ATEZOLIZUMAB
     Indication: TRANSITIONAL CELL CARCINOMA
     Dosage: DATE OF MOST RECENT DOSE WAS 08/MAR/2018
     Route: 042
     Dates: start: 20180308
  8. ZOMETA [Concomitant]
     Active Substance: ZOLEDRONIC ACID
     Indication: METASTASES TO BONE
     Route: 065
     Dates: start: 20180223
  9. MINOCYCLINE [Concomitant]
     Active Substance: MINOCYCLINE\MINOCYCLINE HYDROCHLORIDE
     Indication: DERMATITIS ACNEIFORM
     Route: 065
     Dates: start: 20180322
  10. XANAX [Concomitant]
     Active Substance: ALPRAZOLAM
     Route: 065
     Dates: start: 20180326, end: 20180328
  11. FUCIDINE [Concomitant]
     Active Substance: FUSIDIC ACID
     Indication: DERMATITIS ACNEIFORM
     Route: 065
     Dates: start: 20180321
  12. DAFALGAN [Concomitant]
     Active Substance: ACETAMINOPHEN
     Indication: ABDOMINAL PAIN
     Route: 065
     Dates: start: 20160222
  13. LAXOBERON [Concomitant]
     Active Substance: SODIUM PICOSULFATE
     Indication: CONSTIPATION
     Route: 065
     Dates: start: 20180326, end: 20180326
  14. FRAXIPARINE [Concomitant]
     Active Substance: NADROPARIN CALCIUM
     Route: 065
     Dates: start: 20180322, end: 20180322
  15. PANTOPRAZOLE [Concomitant]
     Active Substance: PANTOPRAZOLE
     Indication: GASTRIC ULCER
     Route: 065
     Dates: start: 20151218
  16. METRONIDAZOLE. [Concomitant]
     Active Substance: METRONIDAZOLE
     Indication: DERMATITIS ACNEIFORM
     Route: 065
     Dates: start: 20180322
  17. XYZALL [Concomitant]
     Active Substance: LEVOCETIRIZINE DIHYDROCHLORIDE
     Indication: DERMATITIS ACNEIFORM
     Route: 065
     Dates: start: 20180322, end: 20180323

REACTIONS (1)
  - Urinary tract infection [Not Recovered/Not Resolved]

NARRATIVE: CASE EVENT DATE: 20180322
